FAERS Safety Report 13044955 (Version 2)
Quarter: 2017Q3

REPORT INFORMATION
  Report Type: Report from Study
  Country: BR (occurrence: BR)
  Receive Date: 20161220
  Receipt Date: 20170810
  Transmission Date: 20171127
  Serious: Yes (Hospitalization)
  Sender: FDA-Public Use
  Company Number: BR-BIOGEN-2016BI00332950

PATIENT
  Age: 38 Year
  Sex: Male

DRUGS (1)
  1. TYSABRI [Suspect]
     Active Substance: NATALIZUMAB
     Indication: MULTIPLE SCLEROSIS
     Dosage: INFUSED OVER 1 HOUR
     Route: 042
     Dates: start: 20100101, end: 20160801

REACTIONS (5)
  - Treatment failure [Unknown]
  - Inflammation [Unknown]
  - Motor dysfunction [Not Recovered/Not Resolved]
  - Multiple sclerosis relapse [Unknown]
  - Viral infection [Unknown]

NARRATIVE: CASE EVENT DATE: 201608
